FAERS Safety Report 4279632-X (Version None)
Quarter: 2004Q1

REPORT INFORMATION
  Report Type: 
  Country: None (occurrence: None)
  Receive Date: 20040123
  Receipt Date: 20040109
  Transmission Date: 20041129
  Serious: Yes (Hospitalization)
  Sender: FDA-Public Use
  Company Number: 2003-06449

PATIENT
  Age: 35 Year
  Sex: Male
  Weight: 83 kg

DRUGS (6)
  1. VIREAD [Suspect]
     Indication: HIV INFECTION
     Dosage: 2700 MG PO
     Route: 048
     Dates: start: 20031107, end: 20031107
  2. VIREAD [Suspect]
     Indication: HIV INFECTION
     Dates: start: 20021201, end: 20031106
  3. EPIVIR [Suspect]
     Indication: HIV INFECTION
     Dosage: 9000 MG PO
     Route: 048
     Dates: start: 20031107, end: 20031107
  4. EPIVIR [Suspect]
     Indication: HIV INFECTION
     Dates: start: 20000101, end: 20031106
  5. VIRAMUNE [Suspect]
     Indication: HIV INFECTION
     Dosage: 240 MG PO
     Route: 048
     Dates: start: 20031107, end: 20031107
  6. VIRAMUNE [Suspect]
     Indication: HIV INFECTION
     Dates: start: 20031001, end: 20031106

REACTIONS (5)
  - ALANINE AMINOTRANSFERASE INCREASED [None]
  - GAMMA-GLUTAMYLTRANSFERASE INCREASED [None]
  - NAUSEA [None]
  - OVERDOSE [None]
  - SUICIDE ATTEMPT [None]
